FAERS Safety Report 14262274 (Version 1)
Quarter: 2017Q4

REPORT INFORMATION
  Report Type: Spontaneous
  Country: CZ (occurrence: CZ)
  Receive Date: 20171208
  Receipt Date: 20171208
  Transmission Date: 20180321
  Serious: Yes (Hospitalization, Other)
  Sender: FDA-Public Use
  Company Number: CZ-ACCORD-061753

PATIENT
  Age: 82 Year
  Sex: Female

DRUGS (21)
  1. VALPROIC ACID. [Suspect]
     Active Substance: VALPROIC ACID
     Indication: SEIZURE
     Route: 042
  2. IBUPROFEN. [Suspect]
     Active Substance: IBUPROFEN
     Indication: PRODUCT USED FOR UNKNOWN INDICATION
  3. PROPOFOL. [Suspect]
     Active Substance: PROPOFOL
     Indication: SEIZURE
  4. CYNT (MOXONIDIN) [Concomitant]
     Active Substance: MOXONIDINE
  5. MILURIT [Concomitant]
     Active Substance: ALLOPURINOL
  6. FLUCONAZOLE. [Suspect]
     Active Substance: FLUCONAZOLE
     Indication: PNEUMONIA
  7. PHENYTOIN. [Suspect]
     Active Substance: PHENYTOIN
     Indication: SEIZURE
     Route: 042
  8. METAMIZOLE SODIUM [Suspect]
     Active Substance: METAMIZOLE SODIUM
     Indication: PRODUCT USED FOR UNKNOWN INDICATION
  9. GODASAL [Concomitant]
     Active Substance: ASPIRIN\GLYCINE
  10. LEVETIRACETAM. [Suspect]
     Active Substance: LEVETIRACETAM
     Indication: SEIZURE
     Dosage: 40 MG/KG
  11. KAPIDIN [Concomitant]
  12. CEFTRIAXONE. [Suspect]
     Active Substance: CEFTRIAXONE
     Indication: PNEUMONIA
  13. TRITACE [Concomitant]
     Active Substance: RAMIPRIL
  14. LEVETIRACETAM. [Suspect]
     Active Substance: LEVETIRACETAM
     Indication: PRODUCT USED FOR UNKNOWN INDICATION
  15. DIAZEPAM. [Suspect]
     Active Substance: DIAZEPAM
     Indication: SEIZURE
     Route: 042
  16. GLIQUIDONE [Concomitant]
     Active Substance: GLIQUIDONE
  17. VASILIP [Concomitant]
     Active Substance: SIMVASTATIN
  18. AMOXICILLIN. [Suspect]
     Active Substance: AMOXICILLIN
     Indication: PNEUMONIA
  19. LOKREN [Concomitant]
     Active Substance: BETAXOLOL HYDROCHLORIDE
  20. PARACETAMOL [Suspect]
     Active Substance: ACETAMINOPHEN
     Indication: PRODUCT USED FOR UNKNOWN INDICATION
  21. EUTHYROX [Concomitant]
     Active Substance: LEVOTHYROXINE SODIUM

REACTIONS (4)
  - Stevens-Johnson syndrome [Unknown]
  - Pneumonia [Unknown]
  - Status epilepticus [Unknown]
  - Drug ineffective [Unknown]
